FAERS Safety Report 8163331-8 (Version None)
Quarter: 2012Q1

REPORT INFORMATION
  Report Type: 
  Country: None (occurrence: None)
  Receive Date: 20120224
  Receipt Date: 20120215
  Transmission Date: 20120608
  Serious: Yes (Other)
  Sender: FDA-Public Use
  Company Number: GR-ABBOTT-12P-066-0905152-01

PATIENT
  Sex: Female

DRUGS (5)
  1. HUMIRA [Suspect]
     Indication: CROHN'S DISEASE
     Dosage: ONCE
     Route: 058
  2. HUMIRA [Suspect]
     Route: 058
     Dates: end: 20110220
  3. COMMERCIAL HUMIRA [Concomitant]
     Indication: CROHN'S DISEASE
     Route: 058
     Dates: start: 20090414
  4. AZATHIOPRINE [Concomitant]
     Indication: CROHN'S DISEASE
     Dates: start: 20100408
  5. HUMIRA [Suspect]
     Dosage: WEEK 2
     Route: 058

REACTIONS (1)
  - ABORTION SPONTANEOUS [None]
